FAERS Safety Report 6744126-6 (Version None)
Quarter: 2010Q2

REPORT INFORMATION
  Report Type: 
  Country: None (occurrence: None)
  Receive Date: 20100527
  Receipt Date: 20100517
  Transmission Date: 20101027
  Serious: Yes (Other)
  Sender: FDA-Public Use
  Company Number: B0653148A

PATIENT
  Age: 51 Year
  Sex: Female

DRUGS (5)
  1. ARIXTRA [Suspect]
     Indication: THROMBOSIS PROPHYLAXIS
     Route: 058
     Dates: start: 20100126, end: 20100209
  2. DAFALGAN [Concomitant]
     Indication: PAIN
     Route: 048
     Dates: start: 20100126
  3. NEXIUM [Concomitant]
     Route: 048
     Dates: start: 20100126
  4. DUPHALAC [Concomitant]
     Indication: CONSTIPATION
     Route: 048
     Dates: start: 20100126, end: 20100215
  5. VOLTAREN [Concomitant]
     Route: 048
     Dates: start: 20100126

REACTIONS (2)
  - OEDEMA [None]
  - SLEEP DISORDER [None]
